FAERS Safety Report 20809956 (Version 7)
Quarter: 2022Q3

REPORT INFORMATION
  Report Type: Report from Study
  Country: US (occurrence: US)
  Receive Date: 20220510
  Receipt Date: 20220929
  Transmission Date: 20221026
  Serious: No
  Sender: FDA-Public Use
  Company Number: US-NOVARTISTESTPH-NVSC2022US107279

PATIENT
  Sex: Male

DRUGS (1)
  1. COSENTYX [Suspect]
     Active Substance: SECUKINUMAB
     Indication: Psoriasis
     Dosage: 300 MG, (ONCE A WEEK FOR 5 WEEKS AND THEN Q 4 WEEKS)
     Route: 058

REACTIONS (7)
  - Tooth infection [Unknown]
  - Acrochordon [Unknown]
  - Rhinorrhoea [Unknown]
  - Pruritus [Unknown]
  - Condition aggravated [Unknown]
  - Cardiac disorder [Unknown]
  - Somnolence [Unknown]
